FAERS Safety Report 7772073-X (Version None)
Quarter: 2011Q3

REPORT INFORMATION
  Report Type: 
  Country: None (occurrence: None)
  Receive Date: 20110922
  Receipt Date: 20110418
  Transmission Date: 20111222
  Serious: Yes (Hospitalization, Other)
  Sender: FDA-Public Use
  Company Number: US-ASTRAZENECA-2007UW25662

PATIENT
  Age: 34 Year
  Sex: Male
  Weight: 87.1 kg

DRUGS (30)
  1. SEROQUEL [Suspect]
     Indication: BIPOLAR DISORDER
     Dosage: 200 MG DAILY , 100 MG ONE TABLET TWICE DAILY
     Route: 048
     Dates: start: 20030304
  2. SEROQUEL [Suspect]
     Dosage: 100 - 1000 MG
     Route: 048
     Dates: start: 20030301, end: 20061114
  3. CARBAMAZEPINE [Concomitant]
     Dosage: 200 MG TWO TABLETS TWICE A DAY
     Dates: start: 20040719
  4. NEXIUM [Concomitant]
     Dates: start: 20040719
  5. KLOR-CON [Concomitant]
     Dates: start: 20040719
  6. DIPHENHYDRAMINE HCL [Concomitant]
     Dosage: 50 MG 2 CAPSULES EVERY NIGHT
     Dates: start: 20030304
  7. SOLIAN [Concomitant]
     Indication: FIBROMYALGIA
  8. GEODON [Concomitant]
  9. ZYPREXA/SYMBYAX [Concomitant]
  10. METHADONE HCL [Concomitant]
     Indication: FIBROMYALGIA
  11. PLAVIX [Concomitant]
     Dates: start: 20040719
  12. METOPROLOL [Concomitant]
     Dates: start: 20040719
  13. RISPERDAL [Concomitant]
  14. TEMAZEPAM [Concomitant]
     Dates: start: 20040719
  15. ENALAPRIL MALEATE [Concomitant]
     Dates: start: 20040719
  16. GEMFIBROZIL [Concomitant]
     Dates: start: 20040719
  17. BENZTROPINE MESYLATE [Concomitant]
     Dosage: 2 MG DAILY, 1 MG 1 TABLET TWICE DAILY
     Dates: start: 20030304
  18. TRAZODONE HYDROCHLORIDE [Concomitant]
     Dosage: 150 MG TWO TABLETS AT NIGHT
     Dates: start: 20030304
  19. DEPAKOTE [Concomitant]
  20. SEROQUEL [Suspect]
     Indication: SLEEP DISORDER
     Dosage: 200 MG DAILY , 100 MG ONE TABLET TWICE DAILY
     Route: 048
     Dates: start: 20030304
  21. SEROQUEL [Suspect]
     Dosage: 100 - 1000 MG
     Route: 048
     Dates: start: 20030301, end: 20061114
  22. ABILIFY [Concomitant]
  23. NAVANE [Concomitant]
  24. NEURONTIN [Concomitant]
     Dosage: 2400 - 3200 MG
     Dates: start: 20030304
  25. TRILAFON [Concomitant]
     Dates: start: 20040719
  26. ZYBAN [Concomitant]
     Dates: start: 20040719
  27. FUROSEMIDE [Concomitant]
     Dates: start: 20040719
  28. CLONAZEPAM [Concomitant]
     Dates: start: 20040719
  29. COCAINE [Concomitant]
     Indication: FIBROMYALGIA
  30. ASPIRIN [Concomitant]
     Dates: start: 20040719

REACTIONS (7)
  - BLOOD CHOLESTEROL INCREASED [None]
  - DIABETIC KETOACIDOSIS [None]
  - TYPE 2 DIABETES MELLITUS [None]
  - BLOOD TRIGLYCERIDES INCREASED [None]
  - OBESITY [None]
  - DIABETES MELLITUS INADEQUATE CONTROL [None]
  - HYPERLIPIDAEMIA [None]
